FAERS Safety Report 9377591 (Version 1)
Quarter: 2013Q3

REPORT INFORMATION
  Report Type: Spontaneous
  Country: US (occurrence: US)
  Receive Date: 20130701
  Receipt Date: 20130701
  Transmission Date: 20140515
  Serious: No
  Sender: FDA-Public Use
  Company Number: US-009507513-1307USA000463

PATIENT
  Sex: Male

DRUGS (1)
  1. LOTRIMIN ULTRA [Suspect]
     Indication: SKIN EXFOLIATION
     Dosage: UNK, UNKNOWN
     Route: 061

REACTIONS (1)
  - Condition aggravated [Unknown]
